FAERS Safety Report 8635505 (Version 2)
Quarter: 2012Q4

REPORT INFORMATION
  Report Type: Report from Study
  Country: IT (occurrence: IT)
  Receive Date: 20120626
  Receipt Date: 20121003
  Transmission Date: 20130627
  Serious: Yes (Hospitalization)
  Sender: FDA-Public Use
  Company Number: IT-ROCHE-1081481

PATIENT
  Age: 54 Year
  Sex: Male

DRUGS (6)
  1. MABTHERA [Suspect]
     Indication: PRODUCT USED FOR UNKNOWN INDICATION
     Route: 042
     Dates: start: 20110919, end: 20110919
  2. ENDOXAN [Concomitant]
     Route: 042
     Dates: start: 20110909, end: 20110909
  3. VINCRISTINA [Concomitant]
     Route: 042
     Dates: start: 20110909, end: 20110909
  4. URBASON [Concomitant]
     Route: 042
     Dates: start: 20110909, end: 20110909
  5. DELTACORTENE [Concomitant]
     Route: 048
     Dates: start: 20110910, end: 20110913
  6. ZYLORIC [Concomitant]
     Route: 048

REACTIONS (8)
  - Anaphylactic reaction [Recovered/Resolved]
  - Urticaria [Recovered/Resolved]
  - Dysphonia [Recovered/Resolved]
  - Dyspnoea [Recovered/Resolved]
  - Chills [Recovered/Resolved]
  - Hyperhidrosis [Recovered/Resolved]
  - Hypotension [Recovered/Resolved]
  - Bradycardia [Recovered/Resolved]
